FAERS Safety Report 8270318-3 (Version None)
Quarter: 2012Q2

REPORT INFORMATION
  Report Type: 
  Country: None (occurrence: None)
  Receive Date: 20120410
  Receipt Date: 20120328
  Transmission Date: 20120825
  Serious: Yes (Other)
  Sender: FDA-Public Use
  Company Number: DE-RANBAXY-2012RR-55262

PATIENT
  Age: 56 Year
  Sex: Male

DRUGS (3)
  1. CLARAVERSAL [Concomitant]
     Indication: PRODUCT USED FOR UNKNOWN INDICATION
     Dosage: UNK
     Route: 065
  2. CIPROFLOXACIN [Suspect]
     Indication: GASTROINTESTINAL INFECTION
     Dosage: 1 TABLET
     Route: 048
     Dates: start: 20120327
  3. METRONIDAZOL 400 [Concomitant]
     Indication: PRODUCT USED FOR UNKNOWN INDICATION
     Dosage: UNK
     Route: 065

REACTIONS (3)
  - FEAR [None]
  - INSOMNIA [None]
  - SUICIDAL IDEATION [None]
